FAERS Safety Report 13197563 (Version 13)
Quarter: 2019Q2

REPORT INFORMATION
  Report Type: Spontaneous
  Country: US (occurrence: US)
  Receive Date: 20170208
  Receipt Date: 20190510
  Transmission Date: 20190711
  Serious: Yes (Hospitalization, Disabling, Other)
  Sender: FDA-Public Use
  Company Number: US-PFIZER INC-2017056059

PATIENT
  Age: 62 Year
  Sex: Female

DRUGS (32)
  1. ASA [Concomitant]
     Active Substance: ASPIRIN
     Indication: ESSENTIAL HYPERTENSION
     Dosage: 1 DF, 1X/DAY
     Route: 048
  2. ASPIRIN EC [Concomitant]
     Active Substance: ASPIRIN
     Indication: CARDIOVASCULAR EVENT PROPHYLAXIS
     Dosage: 1 DF, 1X/DAY
     Route: 048
  3. SIMVASTATIN. [Concomitant]
     Active Substance: SIMVASTATIN
     Dosage: 1 DF, 1X/DAY (IN EVENING)
     Route: 048
  4. CELEXA [Concomitant]
     Active Substance: CITALOPRAM HYDROBROMIDE
     Indication: NERVOUS SYSTEM DISORDER
     Dosage: 40 MG, UNK
  5. LORATADINE. [Concomitant]
     Active Substance: LORATADINE
     Dosage: 10 MG, 1X/DAY
  6. ZOFRAN [Concomitant]
     Active Substance: ONDANSETRON HYDROCHLORIDE
     Indication: GASTROOESOPHAGEAL REFLUX DISEASE
     Dosage: 1 DF, AS NEEDED (EVERY 8 HOURS, 30 DAYS)
     Route: 048
  7. LOSARTAN POTASSIUM. [Concomitant]
     Active Substance: LOSARTAN POTASSIUM
     Dosage: 100 MG, 1X/DAY
  8. DILANTIN [Suspect]
     Active Substance: PHENYTOIN
     Indication: EPILEPSY
     Dosage: UNK
     Route: 048
  9. ZOCOR [Concomitant]
     Active Substance: SIMVASTATIN
     Dosage: 20 MG, UNK
  10. OMEPRAZOLE. [Concomitant]
     Active Substance: OMEPRAZOLE
     Indication: GASTROOESOPHAGEAL REFLUX DISEASE
     Dosage: 1 DF, 1X/DAY
     Route: 048
  11. CITALOPRAM HYDROBROMIDE. [Concomitant]
     Active Substance: CITALOPRAM HYDROBROMIDE
     Dosage: 40 MG, UNK
  12. PRILOSEC [Concomitant]
     Active Substance: OMEPRAZOLE MAGNESIUM
     Indication: GASTROOESOPHAGEAL REFLUX DISEASE
     Dosage: 20 MG, UNK
  13. ANTIVERT [Concomitant]
     Active Substance: MECLIZINE HYDROCHLORIDE
     Indication: DIZZINESS
     Dosage: 25 MG, UNK
  14. ONDANSETRON [Concomitant]
     Active Substance: ONDANSETRON
     Dosage: 4 MG, AS NEEDED
  15. LOSARTAN. [Concomitant]
     Active Substance: LOSARTAN
     Indication: ESSENTIAL HYPERTENSION
     Dosage: 1 DF, 1X/DAY
     Route: 048
  16. ARICEPT [Concomitant]
     Active Substance: DONEPEZIL HYDROCHLORIDE
     Indication: DEMENTIA
     Dosage: 1 DF, 1X/DAY
     Route: 048
  17. OMEGA Q PLUS [Concomitant]
     Dosage: UNK
  18. ZOCOR [Concomitant]
     Active Substance: SIMVASTATIN
     Indication: TYPE V HYPERLIPIDAEMIA
     Dosage: 1 DF, 1X/DAY (ONCE A DAY, AT BEDTIME)
     Route: 048
  19. ASA [Concomitant]
     Active Substance: ASPIRIN
     Indication: CORONARY ARTERY DISEASE
  20. HCTZ [Concomitant]
     Active Substance: HYDROCHLOROTHIAZIDE
     Dosage: 1 DF, 1X/DAY
     Route: 048
  21. EXELON [Concomitant]
     Active Substance: RIVASTIGMINE TARTRATE
     Dosage: UNK
  22. NAMENDA [Concomitant]
     Active Substance: MEMANTINE HYDROCHLORIDE
     Indication: DEMENTIA
     Dosage: 2 DF, 2X/DAY
     Route: 048
     Dates: start: 20171005
  23. ZOFRAN [Concomitant]
     Active Substance: ONDANSETRON HYDROCHLORIDE
     Indication: NAUSEA
     Dosage: 4 MG, UNK
  24. COZAAR [Concomitant]
     Active Substance: LOSARTAN POTASSIUM
     Dosage: 1 DF, 1X/DAY
     Route: 048
  25. RIVASTIGMINE TARTRATE. [Concomitant]
     Active Substance: RIVASTIGMINE TARTRATE
     Dosage: 1 DF, 2X/DAY (MORNING AND EVENING)
     Route: 048
     Dates: start: 20171116
  26. PHENOBARBITAL. [Suspect]
     Active Substance: PHENOBARBITAL
     Indication: EPILEPSY
     Dosage: UNK
  27. MYSOLINE [Concomitant]
     Active Substance: PRIMIDONE
     Indication: EPILEPSY
     Dosage: UNK
  28. OMEPRAZOLE. [Concomitant]
     Active Substance: OMEPRAZOLE
     Dosage: 2 DF, 1X/DAY (BEFORE MEAL)
     Route: 048
  29. CITALOPRAM HYDROBROMIDE. [Concomitant]
     Active Substance: CITALOPRAM HYDROBROMIDE
     Indication: ANXIETY
     Dosage: 1 DF, 1X/DAY
     Route: 048
  30. MEMANTINE. [Concomitant]
     Active Substance: MEMANTINE
     Indication: DEMENTIA
     Dosage: 1 DF, 2X/DAY
  31. MECLIZINE [Concomitant]
     Active Substance: MECLIZINE HYDROCHLORIDE
     Dosage: 1 DF, 3X/DAY
     Route: 048
  32. NYSTATIN/TRIAMCINOLONE [Concomitant]
     Indication: RASH
     Dosage: UNK

REACTIONS (10)
  - Gastrointestinal haemorrhage [Unknown]
  - Neuropathy peripheral [Not Recovered/Not Resolved]
  - Chronic gastritis [Unknown]
  - Cerebral ataxia [Unknown]
  - Cerebral atrophy [Unknown]
  - Dizziness [Unknown]
  - Nausea [Unknown]
  - Cerebellar atrophy [Not Recovered/Not Resolved]
  - Ataxia [Not Recovered/Not Resolved]
  - Multiple system atrophy [Unknown]

NARRATIVE: CASE EVENT DATE: 2016
